FAERS Safety Report 4743759-6 (Version None)
Quarter: 2005Q3

REPORT INFORMATION
  Report Type: 
  Country: None (occurrence: None)
  Receive Date: 20050812
  Receipt Date: 20050802
  Transmission Date: 20060218
  Serious: Yes (Death)
  Sender: FDA-Public Use
  Company Number: NL-GLAXOSMITHKLINE-B0390167A

PATIENT
  Age: 48 Year
  Sex: Male

DRUGS (3)
  1. PAROXETINE HCL [Suspect]
     Indication: DRUG USE FOR UNKNOWN INDICATION
     Dates: start: 20050101
  2. ARTHROTEC [Suspect]
     Indication: DRUG USE FOR UNKNOWN INDICATION
  3. NO CONCURRENT MEDICATION [Concomitant]

REACTIONS (1)
  - MYOCARDITIS [None]
